FAERS Safety Report 21519626 (Version 1)
Quarter: 2022Q4

REPORT INFORMATION
  Report Type: Spontaneous
  Country: US (occurrence: US)
  Receive Date: 20221028
  Receipt Date: 20221028
  Transmission Date: 20230112
  Serious: Yes (Life-Threatening, Other)
  Sender: FDA-Public Use
  Company Number: US-FreseniusKabi-FK202214371

PATIENT
  Age: 59 Year
  Sex: Male

DRUGS (1)
  1. AMIODARONE [Suspect]
     Active Substance: AMIODARONE
     Indication: Ventricular tachycardia
     Dates: start: 2017

REACTIONS (3)
  - Arrhythmic storm [Recovered/Resolved]
  - Thyrotoxic crisis [Recovered/Resolved]
  - Hyperthyroidism [Recovered/Resolved]
